FAERS Safety Report 24247824 (Version 2)
Quarter: 2024Q4

REPORT INFORMATION
  Report Type: Spontaneous
  Country: US (occurrence: US)
  Receive Date: 20240826
  Receipt Date: 20241002
  Transmission Date: 20250115
  Serious: No
  Sender: ROCHE
  Company Number: US-ROCHE-10000065232

PATIENT
  Sex: Female
  Weight: 104.33 kg

DRUGS (9)
  1. XOLAIR PFS [Suspect]
     Active Substance: OMALIZUMAB
     Indication: Asthma
     Dosage: STRENGTH:150MG/ML, 75MG/ML, ONGOING?XOLAIR TOOK FOLLOWING DATES: 13-MAY-2024, 29-MAY-2024, 12-JUN-20
     Route: 058
     Dates: start: 20240513
  2. XOLAIR PFS [Suspect]
     Active Substance: OMALIZUMAB
  3. AMLODIPINE [Concomitant]
     Active Substance: AMLODIPINE BESYLATE
  4. PANTOPRAZOLE [Concomitant]
     Active Substance: PANTOPRAZOLE
  5. PLAVIX [Concomitant]
     Active Substance: CLOPIDOGREL BISULFATE
  6. ATORVASTATIN [Concomitant]
     Active Substance: ATORVASTATIN
  7. ASPIRIN [Concomitant]
     Active Substance: ASPIRIN
  8. CYCLOBENZAPRINE [Concomitant]
     Active Substance: CYCLOBENZAPRINE
  9. CITALOPRAM HYDROBROMIDE [Concomitant]
     Active Substance: CITALOPRAM HYDROBROMIDE

REACTIONS (3)
  - Injection site reaction [Unknown]
  - Rash [Unknown]
  - Pruritus [Unknown]
